FAERS Safety Report 8575973-6 (Version None)
Quarter: 2012Q3

REPORT INFORMATION
  Report Type: 
  Country: None (occurrence: None)
  Receive Date: 20120807
  Receipt Date: 20120726
  Transmission Date: 20120928
  Serious: Yes (Hospitalization)
  Sender: FDA-Public Use
  Company Number: CA-FRI-1000029696

PATIENT
  Age: 57 Year
  Sex: Male
  Weight: 90.72 kg

DRUGS (7)
  1. MONOPRIL [Concomitant]
     Dosage: 20 MG
  2. ASPIRIN [Concomitant]
     Dosage: 80 MG
  3. ESCITALOPRAM [Suspect]
     Indication: ANXIETY
     Dosage: 10 MG
     Route: 048
     Dates: start: 20110919, end: 20110923
  4. VIAGRA [Concomitant]
  5. ESCITALOPRAM [Suspect]
     Dosage: 5 MG
     Route: 048
     Dates: start: 20110924, end: 20110927
  6. HYDROCHLOROTHIAZDE TAB [Concomitant]
     Dosage: 12.5 MG
  7. OMEPRAZOLE (PRISOLEC) [Concomitant]
     Dosage: 20 MG

REACTIONS (11)
  - INSOMNIA [None]
  - FATIGUE [None]
  - DIZZINESS [None]
  - ASTHENIA [None]
  - TREMOR [None]
  - CONDITION AGGRAVATED [None]
  - MUSCLE SPASMS [None]
  - PALPITATIONS [None]
  - NAUSEA [None]
  - DECREASED APPETITE [None]
  - BLOOD PRESSURE INCREASED [None]
